FAERS Safety Report 20767625 (Version 4)
Quarter: 2022Q2

REPORT INFORMATION
  Report Type: Spontaneous
  Country: CH (occurrence: CH)
  Receive Date: 20220429
  Receipt Date: 20220610
  Transmission Date: 20220721
  Serious: Yes (Other)
  Sender: FDA-Public Use
  Company Number: CH-SA-SAC20220425000145

PATIENT
  Age: 55 Year
  Sex: Female
  Weight: 87 kg

DRUGS (3)
  1. MYOZYME [Suspect]
     Active Substance: ALGLUCOSIDASE ALFA
     Indication: Glycogen storage disease type II
     Dosage: 1740 MG, QOW
     Route: 042
     Dates: start: 201208, end: 20220322
  2. MEFENAMIC ACID [Concomitant]
     Active Substance: MEFENAMIC ACID
     Indication: Premedication
     Dosage: 500 MG (1X/WEEK TO 1X/MONTH, DEPENDING ON THE SYMPTOMS)
  3. CANDESARTAN [Concomitant]
     Active Substance: CANDESARTAN
     Indication: Premedication

REACTIONS (2)
  - Chronic kidney disease [Not Recovered/Not Resolved]
  - Drug specific antibody present [Unknown]

NARRATIVE: CASE EVENT DATE: 20220301
